FAERS Safety Report 15348554 (Version 1)
Quarter: 2018Q3

REPORT INFORMATION
  Report Type: Spontaneous
  Country: US (occurrence: US)
  Receive Date: 20180904
  Receipt Date: 20180904
  Transmission Date: 20181010
  Serious: No
  Sender: FDA-Public Use
  Company Number: US-OREXO US, INC.-ORE201802-000011

PATIENT
  Sex: Female

DRUGS (4)
  1. ZUBSOLV [Suspect]
     Active Substance: BUPRENORPHINE HYDROCHLORIDE\NALOXONE HYDROCHLORIDE
     Dosage: 5.7 MG/1.4 MG, 3 TABLETS PER DAY
     Dates: start: 20180110
  2. FLEXERIL [Concomitant]
     Active Substance: CYCLOBENZAPRINE HYDROCHLORIDE
  3. ATIVAN [Concomitant]
     Active Substance: LORAZEPAM
     Indication: ANXIETY
  4. FIORICET [Concomitant]
     Active Substance: ACETAMINOPHEN\BUTALBITAL\CAFFEINE
     Indication: MIGRAINE

REACTIONS (8)
  - Drug withdrawal syndrome [Not Recovered/Not Resolved]
  - Food craving [None]
  - Diarrhoea [Recovered/Resolved]
  - Back pain [Not Recovered/Not Resolved]
  - Dizziness [Unknown]
  - Drug dependence [Not Recovered/Not Resolved]
  - Mood altered [Not Recovered/Not Resolved]
  - Pain [Not Recovered/Not Resolved]
